FAERS Safety Report 5455297-6 (Version None)
Quarter: 2007Q3

REPORT INFORMATION
  Report Type: 
  Country: None (occurrence: None)
  Receive Date: 20070913
  Receipt Date: 20070913
  Transmission Date: 20080115
  Serious: Yes (Hospitalization)
  Sender: FDA-Public Use
  Company Number: None

PATIENT
  Age: 75 Year
  Sex: Male

DRUGS (2)
  1. SULFAMETHOXAZOLE AND TRIMETHOPRIM [Suspect]
     Indication: PNEUMONIA
     Dosage: 160MG BID IV
     Route: 042
     Dates: start: 20070820, end: 20070830
  2. WARFARIN SODIUM [Suspect]
     Indication: ATRIAL FIBRILLATION
     Dosage: 2.5MG EVERY DAY PO
     Route: 048
     Dates: start: 20040416, end: 20070822

REACTIONS (1)
  - INTERNATIONAL NORMALISED RATIO INCREASED [None]
